FAERS Safety Report 13705282 (Version 1)
Quarter: 2017Q2

REPORT INFORMATION
  Report Type: Spontaneous
  Country: US (occurrence: US)
  Receive Date: 20170629
  Receipt Date: 20170629
  Transmission Date: 20170830
  Serious: Yes (Hospitalization)
  Sender: FDA-Public Use
  Company Number: None

PATIENT
  Age: 60 Year
  Sex: Female

DRUGS (1)
  1. XELJANZ [Suspect]
     Active Substance: TOFACITINIB CITRATE
     Indication: PRODUCT USED FOR UNKNOWN INDICATION
     Dosage: 5MG 2 TIMES A DAY BY MOUTH
     Route: 048
     Dates: start: 20170303, end: 20170515

REACTIONS (2)
  - Seizure [None]
  - Unevaluable event [None]

NARRATIVE: CASE EVENT DATE: 20170515
